FAERS Safety Report 10994013 (Version 2)
Quarter: 2015Q3

REPORT INFORMATION
  Report Type: Spontaneous
  Country: US (occurrence: US)
  Receive Date: 20150407
  Receipt Date: 20150729
  Transmission Date: 20151125
  Serious: Yes (Other)
  Sender: FDA-Public Use
  Company Number: US-PFIZER INC-2015111088

PATIENT
  Sex: Female

DRUGS (5)
  1. MAGNESIUM [Suspect]
     Active Substance: MAGNESIUM
     Dosage: UNK
  2. ADVIL [Suspect]
     Active Substance: IBUPROFEN
     Dosage: 12 DF, DAILY
  3. ADVIL [Suspect]
     Active Substance: IBUPROFEN
     Dosage: UNK
  4. CITRIC ACID [Suspect]
     Active Substance: CITRIC ACID MONOHYDRATE
     Dosage: UNK
  5. GAS-X [Suspect]
     Active Substance: DIMETHICONE
     Dosage: UNK

REACTIONS (20)
  - Flatulence [Unknown]
  - Abdominal distension [Unknown]
  - Eye colour change [Unknown]
  - Drug hypersensitivity [Unknown]
  - Loss of consciousness [Unknown]
  - Swelling [Unknown]
  - Reaction to drug excipients [Unknown]
  - Muscle disorder [Not Recovered/Not Resolved]
  - Rhinorrhoea [Unknown]
  - Eye discharge [Unknown]
  - Abasia [Unknown]
  - Drug withdrawal syndrome [Unknown]
  - Condition aggravated [Unknown]
  - Peripheral swelling [Unknown]
  - Overdose [Unknown]
  - Vomiting [Unknown]
  - Thermal burn [Unknown]
  - Vaginal discharge [Unknown]
  - Cystitis [Unknown]
  - Malaise [Not Recovered/Not Resolved]
